FAERS Safety Report 12538832 (Version 1)
Quarter: 2016Q3

REPORT INFORMATION
  Report Type: Spontaneous
  Country: US (occurrence: US)
  Receive Date: 20160708
  Receipt Date: 20160708
  Transmission Date: 20161109
  Serious: Yes (Hospitalization, Other)
  Sender: FDA-Public Use
  Company Number: US-DRREDDYS-USA/USA/16/0081144

PATIENT
  Age: 59 Year
  Sex: Female
  Weight: 54.8 kg

DRUGS (2)
  1. AUGMENTIN [Suspect]
     Active Substance: AMOXICILLIN\CLAVULANATE POTASSIUM
     Indication: SINUSITIS
     Route: 048
     Dates: start: 20160121, end: 20160126
  2. FLAGYL [Suspect]
     Active Substance: METRONIDAZOLE\METRONIDAZOLE HYDROCHLORIDE
     Indication: PRODUCT USED FOR UNKNOWN INDICATION
     Route: 065

REACTIONS (18)
  - Peripheral swelling [Recovering/Resolving]
  - Headache [Recovering/Resolving]
  - Fatigue [Recovering/Resolving]
  - Eating disorder [Unknown]
  - Pyrexia [Recovering/Resolving]
  - Dehydration [Recovering/Resolving]
  - Insomnia [Unknown]
  - Weight increased [Recovering/Resolving]
  - Pain in extremity [Recovering/Resolving]
  - Rectal prolapse [Recovering/Resolving]
  - Gait disturbance [Unknown]
  - Rectal haemorrhage [Recovering/Resolving]
  - Anxiety [Recovering/Resolving]
  - Clostridium difficile infection [Unknown]
  - Anorectal discomfort [Not Recovered/Not Resolved]
  - Weight decreased [Recovering/Resolving]
  - Asthenia [Recovering/Resolving]
  - Proctalgia [Not Recovered/Not Resolved]

NARRATIVE: CASE EVENT DATE: 20160127
